FAERS Safety Report 8014625-8 (Version None)
Quarter: 2011Q4

REPORT INFORMATION
  Report Type: 
  Country: None (occurrence: None)
  Receive Date: 20111229
  Receipt Date: 20111219
  Transmission Date: 20120403
  Serious: Yes (Hospitalization)
  Sender: FDA-Public Use
  Company Number: TR-MEDIMMUNE-MEDI-0014293

PATIENT
  Sex: Female
  Weight: 3 kg

DRUGS (2)
  1. SYNAGIS [Suspect]
     Route: 030
     Dates: start: 20111118, end: 20111118
  2. VITAMIN D [Concomitant]
     Route: 048

REACTIONS (2)
  - DYSPNOEA [None]
  - LUNG INFECTION [None]
